FAERS Safety Report 10249359 (Version 2)
Quarter: 2014Q3

REPORT INFORMATION
  Report Type: Spontaneous
  Country: CO (occurrence: CO)
  Receive Date: 20140620
  Receipt Date: 20140723
  Transmission Date: 20150326
  Serious: Yes (Hospitalization)
  Sender: FDA-Public Use
  Company Number: CO-PFIZER INC-2014168793

PATIENT
  Age: 13 Year
  Sex: Male

DRUGS (1)
  1. GENOTROPIN [Suspect]
     Active Substance: SOMATROPIN
     Indication: BODY HEIGHT BELOW NORMAL
     Dosage: 1.65 MG, 1X/DAY
     Route: 058
     Dates: start: 2012

REACTIONS (3)
  - Orchitis [Recovered/Resolved]
  - Blood testosterone increased [Unknown]
  - Testicular torsion [Recovered/Resolved]

NARRATIVE: CASE EVENT DATE: 20140609
